FAERS Safety Report 9553531 (Version 1)
Quarter: 2013Q3

REPORT INFORMATION
  Report Type: Spontaneous
  Country: US (occurrence: None)
  Receive Date: 20130719
  Receipt Date: 20130719
  Transmission Date: 20140515
  Serious: No
  Sender: FDA-Public Use
  Company Number: 2012POI057300047

PATIENT
  Age: 51 Year
  Sex: Female

DRUGS (3)
  1. VENLAFAXINE EXTENDED-RELEASE TABLETS [Suspect]
     Indication: DEPRESSION
     Route: 048
     Dates: start: 20110605, end: 20110608
  2. BLOOD PRESSURE MEDICATION [Concomitant]
  3. THYROID MEDICATION [Concomitant]

REACTIONS (1)
  - Drug ineffective [None]
